FAERS Safety Report 16227785 (Version 1)
Quarter: 2019Q2

REPORT INFORMATION
  Report Type: Spontaneous
  Country: FR (occurrence: FR)
  Receive Date: 20190423
  Receipt Date: 20190423
  Transmission Date: 20190711
  Serious: Yes (Hospitalization)
  Sender: FDA-Public Use
  Company Number: PHHY2019FR090625

PATIENT
  Age: 84 Year
  Sex: Male

DRUGS (2)
  1. AMOXICILLINE/ACIDE CLAVULANIQUE SANDOZ [Suspect]
     Active Substance: AMOXICILLIN\CLAVULANIC ACID
     Indication: CHOLECYSTITIS
     Dosage: 3 G, QD
     Route: 042
     Dates: start: 20190320, end: 20190322
  2. AMOXICILLINE/ACIDE CLAVULANIQUE SANDOZ [Suspect]
     Active Substance: AMOXICILLIN\CLAVULANIC ACID
     Dosage: 3 G, QD
     Route: 048
     Dates: start: 20190322, end: 20190325

REACTIONS (2)
  - Erythema [Recovered/Resolved]
  - Pruritus [Recovered/Resolved]

NARRATIVE: CASE EVENT DATE: 20190325
